FAERS Safety Report 22323154 (Version 1)
Quarter: 2023Q2

REPORT INFORMATION
  Report Type: Spontaneous
  Country: US (occurrence: None)
  Receive Date: 20230512
  Receipt Date: 20230512
  Transmission Date: 20230721
  Serious: Yes (Other)
  Sender: FDA-Public Use
  Company Number: None

PATIENT
  Age: 11 Year
  Sex: Female
  Weight: 31.5 kg

DRUGS (6)
  1. SKYTROFA [Suspect]
     Active Substance: LONAPEGSOMATROPIN-TCGD
     Indication: Growth hormone deficiency
     Dates: start: 20230427, end: 20230511
  2. Supprelin Implant [Concomitant]
  3. SENNA [Concomitant]
     Active Substance: SENNA LEAF\SENNOSIDES\SENNOSIDES A AND B
  4. MAGNESIUM [Concomitant]
     Active Substance: MAGNESIUM
  5. CALCIUM [Concomitant]
     Active Substance: CALCIUM
  6. VITAMINS [Concomitant]
     Active Substance: VITAMINS

REACTIONS (1)
  - Seizure [None]

NARRATIVE: CASE EVENT DATE: 20230511
